FAERS Safety Report 22149503 (Version 1)
Quarter: 2023Q1

REPORT INFORMATION
  Report Type: Other
  Country: US (occurrence: None)
  Receive Date: 20230329
  Receipt Date: 20230329
  Transmission Date: 20230418
  Serious: Yes (Other)
  Sender: FDA-Public Use
  Company Number: US-ROCHE-3313979

PATIENT
  Sex: Female

DRUGS (6)
  1. VISMODEGIB [Suspect]
     Active Substance: VISMODEGIB
     Indication: Basal cell carcinoma
     Route: 048
  2. VANCOMYCIN [Concomitant]
     Active Substance: VANCOMYCIN
     Indication: Sepsis
  3. CEFEPIME [Concomitant]
     Active Substance: CEFEPIME HYDROCHLORIDE
     Indication: Sepsis
  4. HEPARIN [Concomitant]
     Active Substance: HEPARIN SODIUM
  5. CEMIPLIMAB [Concomitant]
     Active Substance: CEMIPLIMAB
     Route: 042
  6. RISANKIZUMAB [Concomitant]
     Active Substance: RISANKIZUMAB

REACTIONS (4)
  - Multiple sclerosis [Unknown]
  - Bone lesion [Unknown]
  - Metastases to bone [Unknown]
  - Disease progression [Unknown]
